FAERS Safety Report 14412348 (Version 1)
Quarter: 2018Q1

REPORT INFORMATION
  Report Type: Other
  Country: ES (occurrence: ES)
  Receive Date: 20180119
  Receipt Date: 20180119
  Transmission Date: 20180509
  Serious: Yes (Other)
  Sender: FDA-Public Use
  Company Number: ES-NOSTRUM LABORATORIES, INC.-2040383

PATIENT
  Age: 44 Year
  Sex: Female

DRUGS (1)
  1. ACETAZOLAMIDE EXTENDED-RELEASE [Suspect]
     Active Substance: ACETAZOLAMIDE
     Indication: MIGRAINE
     Route: 048

REACTIONS (1)
  - Angle closure glaucoma [Recovered/Resolved]
